FAERS Safety Report 6678085-1 (Version None)
Quarter: 2010Q2

REPORT INFORMATION
  Report Type: 
  Country: None (occurrence: None)
  Receive Date: 20100409
  Receipt Date: 20100409
  Transmission Date: 20101027
  Serious: Yes (Hospitalization)
  Sender: FDA-Public Use
  Company Number: None

PATIENT
  Age: 51 Year
  Sex: Female
  Weight: 65 kg

DRUGS (2)
  1. ERLOTINIB 300 MG  / 150 MG GENENTECH [Suspect]
     Indication: NASOPHARYNGEAL CANCER STAGE IV
     Dosage: 300 MG DAY 2 PO; 150 MG D3-17 PO
     Route: 048
     Dates: start: 20091126, end: 20100404
  2. CISPLATIN / PACLITAXEL 75MG/M2 / 175MG/M2 MERCK BMS [Suspect]
     Dosage: 75 MG/M2 DAY 1 IV; 175 MG/M2 DAY 1, IV
     Route: 042
     Dates: start: 20091125, end: 20100319

REACTIONS (2)
  - INFECTION [None]
  - NASAL DISORDER [None]
